FAERS Safety Report 5683965-X (Version None)
Quarter: 2008Q1

REPORT INFORMATION
  Report Type: 
  Country: None (occurrence: None)
  Receive Date: 20080328
  Receipt Date: 20080327
  Transmission Date: 20080703
  Serious: Yes (Life-Threatening)
  Sender: FDA-Public Use
  Company Number: PHNU2008DE01154

PATIENT
  Age: 47 Year
  Sex: Female
  Weight: 50.2 kg

DRUGS (10)
  1. RASILEZ [Suspect]
     Indication: HYPERTENSION
     Dosage: 300 MG, QD
     Route: 048
     Dates: start: 20080102, end: 20080228
  2. RAMIPRIL [Suspect]
     Indication: HYPERTENSION
     Dosage: 10 MG, QD
     Route: 048
     Dates: start: 20080128, end: 20080228
  3. EMESTAR PLUS [Concomitant]
     Indication: HYPERTENSION
     Dosage: 600 MG, UNK
  4. HYDROCHLOROTHIAZIDE [Concomitant]
     Indication: HYPERTENSION
     Dosage: 12.5 MG, QD
     Dates: start: 20071026
  5. MOXONIDINE [Concomitant]
     Indication: HYPERTENSION
     Dosage: 0.6 MG/D
     Dates: start: 20060814
  6. CORIFEO [Concomitant]
     Indication: HYPERTENSION
     Dosage: 1 DF, QD
     Dates: start: 20080102
  7. BISOPROLOL FUMARATE [Concomitant]
     Indication: HYPERTENSION
  8. BONDIOL [Concomitant]
     Indication: HYPERPARATHYROIDISM
     Dosage: 1 UG, QW3
     Dates: start: 20071116
  9. ERYPO [Concomitant]
     Indication: NEPHROGENIC ANAEMIA
     Dosage: 6000 IU/WEEK
     Dates: start: 20060630
  10. PHYSEX [Concomitant]
     Indication: HYPERPHOSPHATAEMIA
     Dosage: 500 MG, 6QD
     Dates: start: 20041008

REACTIONS (5)
  - ELECTROCARDIOGRAM T WAVE AMPLITUDE INCREASED [None]
  - HEART RATE DECREASED [None]
  - HYPERKALAEMIA [None]
  - HYPOTENSION [None]
  - MUSCULAR WEAKNESS [None]
